FAERS Safety Report 7339242-4 (Version None)
Quarter: 2011Q1

REPORT INFORMATION
  Report Type: 
  Country: None (occurrence: None)
  Receive Date: 20110308
  Receipt Date: 20110303
  Transmission Date: 20110831
  Serious: Yes (Other)
  Sender: FDA-Public Use
  Company Number: US-AMGEN-USASP2011012479

PATIENT
  Age: 69 Year
  Sex: Male

DRUGS (4)
  1. NPLATE [Suspect]
     Indication: IDIOPATHIC THROMBOCYTOPENIC PURPURA
     Dates: start: 20101015
  2. CYCLOSPORINE [Concomitant]
  3. CYCLOPHOSPHAMIDE [Concomitant]
  4. CORTICOSTEROIDS [Concomitant]

REACTIONS (2)
  - EVANS SYNDROME [None]
  - AUTOIMMUNE NEUTROPENIA [None]
